FAERS Safety Report 4820435-2 (Version None)
Quarter: 2005Q4

REPORT INFORMATION
  Report Type: 
  Country: None (occurrence: None)
  Receive Date: 20051104
  Receipt Date: 20050824
  Transmission Date: 20060501
  Serious: Yes (Hospitalization)
  Sender: FDA-Public Use
  Company Number: NL-BRISTOL-MYERS SQUIBB COMPANY-13095435

PATIENT
  Age: 54 Year
  Sex: Female

DRUGS (3)
  1. CETUXIMAB [Suspect]
     Indication: METASTATIC SQUAMOUS CELL CARCINOMA
     Route: 041
     Dates: start: 20050412, end: 20050412
  2. CARBOPLATIN [Suspect]
     Indication: METASTATIC SQUAMOUS CELL CARCINOMA
     Route: 042
     Dates: start: 20050412, end: 20050628
  3. FLUOROURACIL [Suspect]
     Indication: METASTATIC SQUAMOUS CELL CARCINOMA
     Route: 042
     Dates: start: 20050412, end: 20050701

REACTIONS (2)
  - HYPOMAGNESAEMIA [None]
  - VOMITING [None]
